FAERS Safety Report 4708391-9 (Version None)
Quarter: 2005Q3

REPORT INFORMATION
  Report Type: 
  Country: None (occurrence: None)
  Receive Date: 20050706
  Receipt Date: 20041229
  Transmission Date: 20060218
  Serious: Yes (Life-Threatening, Hospitalization, Disabling, Other)
  Sender: FDA-Public Use
  Company Number: 2004-0007818

PATIENT
  Age: 42 Year
  Sex: Male
  Weight: 64.5 kg

DRUGS (25)
  1. VIREAD [Suspect]
     Indication: HIV INFECTION
     Dosage: 300 MG, 1 IN 1 D, ORAL
     Route: 048
     Dates: start: 20030613, end: 20041108
  2. VALCYTE [Suspect]
  3. VIDEX [Concomitant]
  4. RITONAVIR (RITONAVIR) [Concomitant]
  5. ATAZANAVIR (ATAZANAVIR) [Concomitant]
  6. ESCITALOPRAM OXALATE [Concomitant]
  7. TRAZODONE (TRAZODONE) [Concomitant]
  8. AZITHROMYCIN [Concomitant]
  9. ITRACONAZOLE [Concomitant]
  10. BENADRYL [Concomitant]
  11. BACTRIM DS [Concomitant]
  12. DRONABINOL [Concomitant]
  13. MEGACE [Concomitant]
  14. OXANDRIN [Concomitant]
  15. FEXOFENADINE HCL [Concomitant]
  16. TESTOSTERONE [Concomitant]
  17. RISPERIDONE [Concomitant]
  18. CLONAZEPAM [Concomitant]
  19. ZOLOFT [Concomitant]
  20. METOPROLOL TARTRATE [Concomitant]
  21. ETHAMBUTOL (ETHAMBUTOL) [Concomitant]
  22. DAPSONE [Concomitant]
  23. NISOLDIPINE (NISOLDIPINE) [Concomitant]
  24. CLOTRIMAZOLE (CLOTRIMAZOLE) [Concomitant]
  25. WELLBUTRIN [Concomitant]

REACTIONS (31)
  - AMNESIA [None]
  - ANAEMIA [None]
  - ASTHENIA [None]
  - BALANCE DISORDER [None]
  - BLOOD AMYLASE INCREASED [None]
  - BLOOD CULTURE POSITIVE [None]
  - CHANGE OF BOWEL HABIT [None]
  - FATIGUE [None]
  - GLOMERULONEPHRITIS FOCAL [None]
  - HEARING IMPAIRED [None]
  - INFARCTION [None]
  - LEUKOPENIA [None]
  - LIPASE INCREASED [None]
  - NAUSEA [None]
  - NEPHROSCLEROSIS [None]
  - NEUTROPENIA [None]
  - NIGHT SWEATS [None]
  - NUCLEAR MAGNETIC RESONANCE IMAGING ABNORMAL [None]
  - OEDEMA PERIPHERAL [None]
  - PRODUCTIVE COUGH [None]
  - PSEUDOMONAL BACTERAEMIA [None]
  - PYREXIA [None]
  - RENAL FAILURE ACUTE [None]
  - RENAL TUBULAR NECROSIS [None]
  - SPUTUM DISCOLOURED [None]
  - STREPTOCOCCAL BACTERAEMIA [None]
  - STREPTOCOCCAL INFECTION [None]
  - URINE ANALYSIS ABNORMAL [None]
  - VASCULAR DEMENTIA [None]
  - VOMITING [None]
  - WEIGHT DECREASED [None]
